FAERS Safety Report 7900583-0 (Version None)
Quarter: 2011Q4

REPORT INFORMATION
  Report Type: 
  Country: None (occurrence: None)
  Receive Date: 20111108
  Receipt Date: 20111031
  Transmission Date: 20120403
  Serious: Yes (Hospitalization, Other)
  Sender: FDA-Public Use
  Company Number: BR-US-EMD SERONO, INC.-7093239

PATIENT
  Sex: Female

DRUGS (7)
  1. OMEPRAZOLE [Concomitant]
  2. ENOXAPARIN SODIUM [Concomitant]
  3. REBIF [Suspect]
     Indication: SECONDARY PROGRESSIVE MULTIPLE SCLEROSIS
     Dates: start: 20011010
  4. ENALAPRIL MALEATE [Concomitant]
  5. SERTRALINE HYDROCHLORIDE [Concomitant]
  6. METFORMIN HYDROCHLORIDE [Concomitant]
  7. DONAREN [Concomitant]

REACTIONS (4)
  - DIABETES MELLITUS [None]
  - URINARY TRACT INFECTION [None]
  - HYPERTENSION [None]
  - RESPIRATORY TRACT INFECTION [None]
